FAERS Safety Report 17258073 (Version 4)
Quarter: 2020Q1

REPORT INFORMATION
  Report Type: Report from Study
  Country: CO (occurrence: CO)
  Receive Date: 20200110
  Receipt Date: 20200221
  Transmission Date: 20200409
  Serious: Yes (Hospitalization, Other)
  Sender: FDA-Public Use
  Company Number: CO-ASTELLAS-2020US000863

PATIENT
  Age: 61 Year
  Sex: Female
  Weight: 50 kg

DRUGS (2)
  1. TACROLIMUS. [Suspect]
     Active Substance: TACROLIMUS
     Route: 048
     Dates: start: 201912
  2. TACROLIMUS. [Suspect]
     Active Substance: TACROLIMUS
     Indication: RENAL TRANSPLANT
     Route: 048
     Dates: start: 20190909, end: 201912

REACTIONS (13)
  - Ear discomfort [Recovered/Resolved]
  - Blood potassium increased [Recovered/Resolved]
  - Blood creatinine increased [Recovered/Resolved with Sequelae]
  - Diarrhoea [Recovered/Resolved]
  - Cough [Recovered/Resolved]
  - Abdominal discomfort [Recovered/Resolved]
  - Secondary immunodeficiency [Recovered/Resolved]
  - Dehydration [Recovered/Resolved]
  - Renal graft infection [Not Recovered/Not Resolved]
  - Viral infection [Not Recovered/Not Resolved]
  - Diarrhoea [Recovered/Resolved]
  - Dysphonia [Recovered/Resolved]
  - Blood glucose increased [Recovered/Resolved]

NARRATIVE: CASE EVENT DATE: 201911
